FAERS Safety Report 9379489 (Version 1)
Quarter: 2013Q2

REPORT INFORMATION
  Report Type: Spontaneous
  Country: US (occurrence: None)
  Receive Date: 20130627
  Receipt Date: 20130627
  Transmission Date: 20140414
  Serious: Yes (Death)
  Sender: FDA-Public Use
  Company Number: 2013P1009254

PATIENT
  Age: 47 Year
  Sex: Female

DRUGS (2)
  1. INFUMORPH [Suspect]
     Indication: CANCER PAIN
     Route: 037
     Dates: end: 20130531
  2. BUPIVACAINE [Suspect]
     Route: 037
     Dates: end: 20130531

REACTIONS (1)
  - Death [None]
